FAERS Safety Report 6674705 (Version 4)
Quarter: 2015Q3

REPORT INFORMATION
  Report Type: Report from Study
  Country: JP (occurrence: JP)
  Receive Date: 20080609
  Receipt Date: 20150727
  Transmission Date: 20151125
  Serious: Yes (Hospitalization)
  Sender: FDA-Public Use
  Company Number: 2008BI013792

PATIENT
  Age: 23 Year
  Sex: Female

DRUGS (4)
  1. BRUFEN [Concomitant]
     Active Substance: IBUPROFEN
     Dates: start: 20080327, end: 20080516
  2. AVONEX [Suspect]
     Active Substance: INTERFERON BETA-1A
     Indication: RELAPSING-REMITTING MULTIPLE SCLEROSIS
     Route: 030
     Dates: start: 20080321, end: 20080516
  3. LOXONIN [Concomitant]
     Active Substance: LOXOPROFEN SODIUM
     Dates: start: 20080321, end: 20080326
  4. FERROFIEL [Concomitant]
     Dates: start: 20080319, end: 20080522

REACTIONS (2)
  - Hepatic function abnormal [Recovered/Resolved]
  - Pyrexia [Recovered/Resolved]

NARRATIVE: CASE EVENT DATE: 20080321
